FAERS Safety Report 7712275-1 (Version None)
Quarter: 2011Q3

REPORT INFORMATION
  Report Type: 
  Country: None (occurrence: None)
  Receive Date: 20110826
  Receipt Date: 20110822
  Transmission Date: 20111222
  Serious: Yes (Death)
  Sender: FDA-Public Use
  Company Number: US-B.I. PHARMACEUTICALS,INC./RIDGEFIELD-2007-DE-00851GD

PATIENT
  Age: 4 Year
  Sex: Female

DRUGS (7)
  1. CATAPRES [Suspect]
     Indication: BIPOLAR DISORDER
  2. DEPAKOTE [Suspect]
     Indication: ATTENTION DEFICIT/HYPERACTIVITY DISORDER
     Dosage: 750 MG
  3. CHILDREN'S TYLENOL PLUS COUGH + RUNNY NOSE [Concomitant]
     Indication: NASOPHARYNGITIS
  4. SEROQUEL [Suspect]
     Indication: BIPOLAR DISORDER
  5. CATAPRES [Suspect]
     Indication: ATTENTION DEFICIT/HYPERACTIVITY DISORDER
     Dosage: 0.35 MG
  6. SEROQUEL [Suspect]
     Indication: ATTENTION DEFICIT/HYPERACTIVITY DISORDER
     Dosage: 200 MG
  7. DEPAKOTE [Suspect]
     Indication: BIPOLAR DISORDER

REACTIONS (5)
  - MENTAL DISORDER [None]
  - DRUG ABUSE [None]
  - TRAUMATIC LUNG INJURY [None]
  - HEART INJURY [None]
  - OVERDOSE [None]
